FAERS Safety Report 7328089-0 (Version None)
Quarter: 2011Q1

REPORT INFORMATION
  Report Type: 
  Country: None (occurrence: None)
  Receive Date: 20110303
  Receipt Date: 20110228
  Transmission Date: 20110831
  Serious: Yes (Other)
  Sender: FDA-Public Use
  Company Number: US-JNJFOC-20100805185

PATIENT
  Sex: Female

DRUGS (4)
  1. LISINOPRIL [Concomitant]
     Indication: BLOOD PRESSURE
     Route: 065
  2. LEVAQUIN [Suspect]
     Indication: ILL-DEFINED DISORDER
     Route: 048
  3. ZESTORETIC [Concomitant]
     Indication: HYPERTENSION
     Route: 065
  4. LEVAQUIN [Suspect]
     Indication: GASTRIC INFECTION
     Route: 048

REACTIONS (5)
  - MENISCUS LESION [None]
  - TENDON INJURY [None]
  - ROTATOR CUFF SYNDROME [None]
  - INFLAMMATION [None]
  - PAIN IN EXTREMITY [None]
